FAERS Safety Report 24138883 (Version 2)
Quarter: 2024Q3

REPORT INFORMATION
  Report Type: Report from Study
  Country: US (occurrence: US)
  Receive Date: 20240726
  Receipt Date: 20240917
  Transmission Date: 20241016
  Serious: Yes (Other)
  Sender: ABBVIE
  Company Number: US-ABBVIE-5781423

PATIENT
  Sex: Female

DRUGS (2)
  1. RINVOQ [Suspect]
     Active Substance: UPADACITINIB
     Indication: Crohn^s disease
     Route: 048
     Dates: start: 20231213
  2. RINVOQ [Suspect]
     Active Substance: UPADACITINIB
     Indication: Crohn^s disease
     Dosage: UNIT DOSE: 30, UNIT DOSE UNITS: TABLET
     Route: 048
     Dates: start: 20240101

REACTIONS (11)
  - Cataract [Unknown]
  - Dermatitis [Not Recovered/Not Resolved]
  - Headache [Not Recovered/Not Resolved]
  - Rosacea [Unknown]
  - Weight increased [Not Recovered/Not Resolved]
  - Dermatitis contact [Unknown]
  - Dermatitis acneiform [Unknown]
  - Pain [Not Recovered/Not Resolved]
  - Fungal infection [Unknown]
  - Large intestinal ulcer [Not Recovered/Not Resolved]
  - Weight increased [Recovered/Resolved]

NARRATIVE: CASE EVENT DATE: 20240101
